FAERS Safety Report 4597125-7 (Version None)
Quarter: 2005Q1

REPORT INFORMATION
  Report Type: 
  Country: None (occurrence: None)
  Receive Date: 20050225
  Receipt Date: 20040806
  Transmission Date: 20050727
  Serious: Yes (Other)
  Sender: FDA-Public Use
  Company Number: 200510160BBE

PATIENT
  Age: 17 Year
  Sex: Male

DRUGS (13)
  1. KOATE [Suspect]
     Indication: FACTOR VIII DEFICIENCY
     Dosage: SEE IMAGE
     Dates: start: 19860101, end: 19870101
  2. KOATE [Suspect]
     Indication: FACTOR VIII DEFICIENCY
     Dosage: SEE IMAGE
     Dates: start: 19880101
  3. KOATE [Suspect]
     Dates: start: 19860101
  4. KOATE [Suspect]
     Dates: start: 19880101
  5. HEMOFIL [Suspect]
     Dosage: SEE IMAGE
     Dates: start: 19770101
  6. HEMOFIL [Suspect]
     Dosage: SEE IMAGE
     Dates: start: 19790101
  7. HEMOFIL [Suspect]
     Dosage: SEE IMAGE
     Dates: start: 19800101
  8. HEMOFIL [Suspect]
     Dosage: SEE IMAGE
     Dates: start: 19810101
  9. HEMOFIL [Suspect]
     Dosage: SEE IMAGE
     Dates: start: 19880101
  10. HEMOFIL HT (FACTOR V111 (ANTIHAEMOPHILIC FACTOR ) ) [Suspect]
     Dates: start: 19860101, end: 19870101
  11. KRYOBULIN (FACTOR V111 (ANTIHAEMOPHILIC FACTOR ) ) [Suspect]
     Dates: start: 19790101
  12. FACTORATE (FACTOR V111 (ANTIHAEMOPHILIC FACTOR ) ) [Suspect]
     Dates: end: 19810101
  13. PROFILATE [Suspect]
     Dates: start: 19880101

REACTIONS (2)
  - HEPATITIS C VIRUS [None]
  - HIV INFECTION [None]
